FAERS Safety Report 11873712 (Version 1)
Quarter: 2015Q4

REPORT INFORMATION
  Report Type: Spontaneous
  Country: CH (occurrence: CH)
  Receive Date: 20151228
  Receipt Date: 20151228
  Transmission Date: 20160305
  Serious: Yes (Hospitalization)
  Sender: FDA-Public Use
  Company Number: CH-ROCHE-1684269

PATIENT
  Age: 48 Year
  Sex: Female
  Weight: 80 kg

DRUGS (6)
  1. CLEMASTINE [Concomitant]
     Active Substance: CLEMASTINE
     Indication: ANAPHYLAXIS PROPHYLAXIS
     Route: 065
     Dates: start: 20150311, end: 20150311
  2. IMUREK 50 [Concomitant]
     Indication: GLOMERULONEPHRITIS
     Route: 048
     Dates: start: 20150311
  3. BACTRIM [Concomitant]
     Active Substance: SULFAMETHOXAZOLE\TRIMETHOPRIM
     Indication: ANTIBIOTIC PROPHYLAXIS
     Route: 048
     Dates: start: 20150311, end: 20150319
  4. MABTHERA [Suspect]
     Active Substance: RITUXIMAB
     Indication: GLOMERULONEPHRITIS
     Route: 041
     Dates: start: 20140219, end: 20150219
  5. MABTHERA [Suspect]
     Active Substance: RITUXIMAB
     Route: 041
     Dates: start: 20150311, end: 20150311
  6. SOLU-MEDROL [Concomitant]
     Active Substance: METHYLPREDNISOLONE SODIUM SUCCINATE
     Indication: ANAPHYLAXIS PROPHYLAXIS
     Route: 041
     Dates: start: 20150311, end: 20150311

REACTIONS (10)
  - Acute kidney injury [Recovered/Resolved]
  - Skin test positive [Recovered/Resolved]
  - Pruritus [Recovered/Resolved]
  - Dermatitis exfoliative [Recovered/Resolved]
  - Myalgia [Recovered/Resolved]
  - Arthralgia [Recovered/Resolved]
  - Lymphocyte transformation test positive [Recovered/Resolved]
  - Diarrhoea [Recovered/Resolved]
  - Systemic inflammatory response syndrome [Recovered/Resolved]
  - Serum sickness [Not Recovered/Not Resolved]

NARRATIVE: CASE EVENT DATE: 20150318
